FAERS Safety Report 7287479-5 (Version None)
Quarter: 2011Q1

REPORT INFORMATION
  Report Type: 
  Country: None (occurrence: None)
  Receive Date: 20110211
  Receipt Date: 20110131
  Transmission Date: 20110831
  Serious: Yes (Death, Hospitalization)
  Sender: FDA-Public Use
  Company Number: FR-CELGENEUS-056-21880-10102130

PATIENT
  Sex: Male

DRUGS (7)
  1. ALDACTONE [Concomitant]
     Indication: ESSENTIAL HYPERTENSION
     Route: 065
  2. PRAVASTATIN [Concomitant]
     Route: 065
  3. LASIX [Concomitant]
     Route: 065
  4. ASPIRIN [Concomitant]
     Route: 065
  5. NEXIUM [Concomitant]
     Route: 065
  6. ISOPTIN [Concomitant]
     Indication: ESSENTIAL HYPERTENSION
     Route: 065
  7. REVLIMID [Suspect]
     Indication: MULTIPLE MYELOMA
     Route: 048
     Dates: start: 20080327, end: 20081224

REACTIONS (2)
  - ACUTE LEUKAEMIA [None]
  - REFRACTORY ANAEMIA WITH AN EXCESS OF BLASTS [None]
